FAERS Safety Report 12592122 (Version 1)
Quarter: 2016Q3

REPORT INFORMATION
  Report Type: Spontaneous
  Country: US (occurrence: US)
  Receive Date: 20160726
  Receipt Date: 20160726
  Transmission Date: 20161109
  Serious: No
  Sender: FDA-Public Use
  Company Number: US-UNITED THERAPEUTICS-UNT-2016-005408

PATIENT
  Age: 51 Year
  Sex: Female
  Weight: 72.56 kg

DRUGS (8)
  1. ORENITRAM [Suspect]
     Active Substance: TREPROSTINIL
     Indication: PULMONARY ARTERIAL HYPERTENSION
     Dosage: 2.625 MG, TID
     Route: 048
     Dates: start: 20151021
  2. ORENITRAM [Suspect]
     Active Substance: TREPROSTINIL
     Dosage: 3.25MG,TID
     Route: 048
     Dates: start: 20160418, end: 20160421
  3. ADCIRCA [Suspect]
     Active Substance: TADALAFIL
     Indication: PRODUCT USED FOR UNKNOWN INDICATION
     Dosage: UNK
     Route: 065
     Dates: start: 201511
  4. ORENITRAM [Suspect]
     Active Substance: TREPROSTINIL
     Dosage: UNK
     Route: 048
  5. ORENITRAM [Suspect]
     Active Substance: TREPROSTINIL
     Dosage: 3.375MG, TID
     Route: 048
     Dates: start: 20160422
  6. ORENITRAM [Suspect]
     Active Substance: TREPROSTINIL
     Dosage: UNK
     Route: 048
  7. ORENITRAM [Suspect]
     Active Substance: TREPROSTINIL
     Dosage: UNK
     Route: 048
  8. ORENITRAM [Suspect]
     Active Substance: TREPROSTINIL
     Indication: PULMONARY ARTERIAL HYPERTENSION
     Dosage: 3.5 MG, TID
     Route: 048

REACTIONS (6)
  - Nasopharyngitis [Unknown]
  - Arthralgia [Unknown]
  - Headache [Unknown]
  - Pain in extremity [Unknown]
  - Myalgia [Unknown]
  - Sinus congestion [Unknown]

NARRATIVE: CASE EVENT DATE: 201603
